FAERS Safety Report 7597050-3 (Version None)
Quarter: 2011Q3

REPORT INFORMATION
  Report Type: 
  Country: None (occurrence: None)
  Receive Date: 20110708
  Receipt Date: 20110627
  Transmission Date: 20111222
  Serious: Yes (Other)
  Sender: FDA-Public Use
  Company Number: US-PFIZER INC-2011075010

PATIENT
  Sex: Male

DRUGS (2)
  1. XALATAN [Suspect]
     Dosage: 2 GTT, 1X/DAY
  2. FLOVENT [Suspect]

REACTIONS (5)
  - NASAL DISORDER [None]
  - INTRAOCULAR PRESSURE INCREASED [None]
  - LUNG DISORDER [None]
  - EYE DISORDER [None]
  - DRUG INEFFECTIVE [None]
